FAERS Safety Report 13798372 (Version 1)
Quarter: 2017Q3

REPORT INFORMATION
  Report Type: Spontaneous
  Country: IL (occurrence: IL)
  Receive Date: 20170727
  Receipt Date: 20170727
  Transmission Date: 20171127
  Serious: Yes (Hospitalization, Other)
  Sender: FDA-Public Use
  Company Number: IL-SUN PHARMACEUTICAL INDUSTRIES LTD-2016R1-118191

PATIENT
  Age: 33 Year
  Sex: Male

DRUGS (5)
  1. EMTRICITABINE/TENOFOVIR/RALTEGRAVIR [Concomitant]
     Indication: ACQUIRED IMMUNODEFICIENCY SYNDROME
  2. NYSTATIN. [Concomitant]
     Active Substance: NYSTATIN
     Indication: PNEUMONIA
  3. NYSTATIN. [Concomitant]
     Active Substance: NYSTATIN
     Indication: OPPORTUNISTIC INFECTION PROPHYLAXIS
  4. DEXAMETHASONE. [Suspect]
     Active Substance: DEXAMETHASONE
     Indication: PRODUCT USED FOR UNKNOWN INDICATION
     Dosage: 18 MG, DAILY
     Route: 065
  5. NYSTATIN. [Concomitant]
     Active Substance: NYSTATIN
     Indication: ORAL CANDIDIASIS

REACTIONS (10)
  - Acinetobacter infection [Unknown]
  - Mucormycosis [Unknown]
  - Intestinal perforation [Unknown]
  - Pneumoperitoneum [Unknown]
  - Liver abscess [Unknown]
  - Lung abscess [Unknown]
  - Histiocytosis haematophagic [Unknown]
  - Septic shock [Unknown]
  - Pneumonia bacterial [Unknown]
  - Eye swelling [Unknown]
